FAERS Safety Report 9382445 (Version 2)
Quarter: 2013Q3

REPORT INFORMATION
  Report Type: Spontaneous
  Country: ES (occurrence: ES)
  Receive Date: 20130703
  Receipt Date: 20130806
  Transmission Date: 20140515
  Serious: Yes (Other)
  Sender: FDA-Public Use
  Company Number: ES-UCBSA-090173

PATIENT
  Age: 39 Year
  Sex: Female
  Weight: 60 kg

DRUGS (1)
  1. CIMZIA [Suspect]
     Indication: RHEUMATOID ARTHRITIS
     Route: 058
     Dates: start: 20121121, end: 20130619

REACTIONS (1)
  - Dermatitis psoriasiform [Unknown]
